FAERS Safety Report 13519462 (Version 1)
Quarter: 2017Q2

REPORT INFORMATION
  Report Type: Spontaneous
  Country: GB (occurrence: GB)
  Receive Date: 20170505
  Receipt Date: 20170505
  Transmission Date: 20170830
  Serious: Yes (Death, Life-Threatening, Other)
  Sender: FDA-Public Use
  Company Number: GB-BAXALTA-2017BLT003741

PATIENT
  Age: 62 Year
  Sex: Female
  Weight: 120 kg

DRUGS (4)
  1. HUMAN ALBUMIN [Suspect]
     Active Substance: ALBUMIN HUMAN
     Indication: SEPSIS
     Dosage: 2 X 100 ML (ONLY 150 ML INFUSED)
     Route: 042
     Dates: start: 20170410, end: 20170410
  2. HUMAN ALBUMIN [Suspect]
     Active Substance: ALBUMIN HUMAN
     Indication: DIALYSIS
     Dosage: 2 X 100 ML
     Route: 042
     Dates: start: 20170418, end: 20170418
  3. HUMAN ALBUMIN [Suspect]
     Active Substance: ALBUMIN HUMAN
     Indication: HYPOTENSION
     Dosage: 2 X 100 ML
     Route: 042
     Dates: start: 20170412, end: 20170412
  4. HUMAN ALBUMIN [Suspect]
     Active Substance: ALBUMIN HUMAN
     Indication: MULTIPLE ORGAN DYSFUNCTION SYNDROME
     Dosage: 1 X 100 ML
     Route: 042
     Dates: start: 20170413, end: 20170413

REACTIONS (7)
  - Sputum discoloured [Unknown]
  - Lung infection [Unknown]
  - Hypotension [Unknown]
  - Pulmonary function test decreased [Unknown]
  - Blood lactic acid increased [Unknown]
  - Multiple organ dysfunction syndrome [Fatal]
  - Pulmonary oedema [Unknown]

NARRATIVE: CASE EVENT DATE: 20170412
